FAERS Safety Report 12631704 (Version 1)
Quarter: 2016Q3

REPORT INFORMATION
  Report Type: Spontaneous
  Country: US (occurrence: US)
  Receive Date: 20160808
  Receipt Date: 20160808
  Transmission Date: 20161109
  Serious: Yes (Other)
  Sender: FDA-Public Use
  Company Number: US-AMGEN-USASP2016099653

PATIENT
  Age: 75 Year
  Sex: Female

DRUGS (1)
  1. PROLIA [Suspect]
     Active Substance: DENOSUMAB
     Indication: OSTEOPOROSIS POSTMENOPAUSAL
     Dosage: UNK, Q6MO
     Route: 065
     Dates: start: 20140615

REACTIONS (6)
  - Tooth abscess [Recovered/Resolved]
  - Tooth fracture [Unknown]
  - Back pain [Not Recovered/Not Resolved]
  - Dental caries [Unknown]
  - Gingival recession [Unknown]
  - Memory impairment [Unknown]
